FAERS Safety Report 7786976-3 (Version None)
Quarter: 2011Q3

REPORT INFORMATION
  Report Type: 
  Country: None (occurrence: None)
  Receive Date: 20110929
  Receipt Date: 20110927
  Transmission Date: 20111222
  Serious: Yes (Hospitalization)
  Sender: FDA-Public Use
  Company Number: US-PFIZER INC-2011230159

PATIENT
  Sex: Female
  Weight: 95 kg

DRUGS (1)
  1. EPLERENONE [Suspect]
     Indication: CARDIAC FAILURE
     Route: 048

REACTIONS (1)
  - TOXIC NODULAR GOITRE [None]
